FAERS Safety Report 25149075 (Version 2)
Quarter: 2025Q2

REPORT INFORMATION
  Report Type: Spontaneous
  Country: US (occurrence: US)
  Receive Date: 20250402
  Receipt Date: 20250411
  Transmission Date: 20250716
  Serious: Yes (Other)
  Sender: RANBAXY
  Company Number: US-SUN PHARMACEUTICAL INDUSTRIES LTD-2025R1-501510

PATIENT
  Age: 48 Year
  Sex: Female

DRUGS (1)
  1. FLECAINIDE ACETATE [Suspect]
     Active Substance: FLECAINIDE ACETATE
     Indication: Atrial fibrillation
     Route: 065

REACTIONS (5)
  - Bradycardia [Unknown]
  - Overdose [Unknown]
  - Suicide attempt [Unknown]
  - Tachyarrhythmia [Unknown]
  - Toxicity to various agents [Unknown]
